FAERS Safety Report 10099038 (Version 1)
Quarter: 2014Q2

REPORT INFORMATION
  Report Type: Spontaneous
  Country: US (occurrence: None)
  Receive Date: 20140422
  Receipt Date: 20140422
  Transmission Date: 20141212
  Serious: Yes (Other)
  Sender: FDA-Public Use
  Company Number: None

PATIENT
  Age: 35 Year
  Sex: Female
  Weight: 52.16 kg

DRUGS (1)
  1. MIRVASO [Suspect]
     Indication: ERYTHEMA
     Dosage: PEA SIZED AMOUNT ONE DAILY APPLIED TO A SURFACE, USUALLY THE SKIN
     Dates: start: 20140315, end: 20140420

REACTIONS (7)
  - Flushing [None]
  - Pain [None]
  - Application site papules [None]
  - Dry eye [None]
  - Ocular hyperaemia [None]
  - Eye pruritus [None]
  - Application site erythema [None]
